FAERS Safety Report 26164744 (Version 1)
Quarter: 2025Q4

REPORT INFORMATION
  Report Type: Report from Study
  Country: CA (occurrence: None)
  Receive Date: 20251216
  Receipt Date: 20251216
  Transmission Date: 20260117
  Serious: Yes (Other)
  Sender: APOTEX
  Company Number: CA-APOTEX-2025AP034094

PATIENT

DRUGS (3)
  1. ZOLEDRONIC ACID [Suspect]
     Active Substance: ZOLEDRONIC ACID
     Indication: Preoperative care
     Dosage: 0.0125 MG/KG DOSE (INITIAL DOSE)
  2. ALFACALCIDOL [Concomitant]
     Active Substance: ALFACALCIDOL
     Indication: Hypocalcaemia
     Dosage: 0.01 MICROGRAM/KILOGRAM, BID (THREE DAYS PRIOR TO INFUSION, AND CONTINUED UNTIL 3 DAYS AFTER INFUSION)
     Route: 065
  3. ALFACALCIDOL [Concomitant]
     Active Substance: ALFACALCIDOL
     Indication: Prophylaxis

REACTIONS (1)
  - Nephrolithiasis [Recovered/Resolved]
